FAERS Safety Report 8552774 (Version 3)
Quarter: 2013Q1

REPORT INFORMATION
  Report Type: Report from Study
  Country: US (occurrence: US)
  Receive Date: 20120508
  Receipt Date: 20130326
  Transmission Date: 20140127
  Serious: Yes (Hospitalization)
  Sender: FDA-Public Use
  Company Number: US-ROCHE-1066392

PATIENT
  Age: 64 Year
  Sex: Female
  Weight: 77.2 kg

DRUGS (4)
  1. PEG-INTERFERON ALFA 2A [Suspect]
     Indication: HEPATITIS C
     Route: 058
     Dates: start: 20110714, end: 20110716
  2. RIBAVIRIN [Suspect]
     Indication: HEPATITIS C
     Route: 048
     Dates: start: 20110714, end: 20110716
  3. AMLODIPINE [Concomitant]
     Route: 065
     Dates: start: 2008
  4. ALISPORIVIR [Suspect]
     Indication: HEPATITIS C
     Route: 048
     Dates: start: 20110714, end: 20110716

REACTIONS (1)
  - Rash erythematous [Recovering/Resolving]
